FAERS Safety Report 4275902-X (Version None)
Quarter: 2004Q1

REPORT INFORMATION
  Report Type: 
  Country: None (occurrence: None)
  Receive Date: 20040121
  Receipt Date: 20030303
  Transmission Date: 20041129
  Serious: No
  Sender: FDA-Public Use
  Company Number: US-GLAXOSMITHKLINE-A0398611A

PATIENT
  Age: 11 Year
  Sex: Male

DRUGS (3)
  1. VALTREX [Suspect]
     Dosage: 625MG THREE TIMES PER DAY
     Route: 048
  2. DEPAKOTE [Concomitant]
  3. CLONIDINE [Concomitant]

REACTIONS (1)
  - COGNITIVE DETERIORATION [None]
